FAERS Safety Report 15827185 (Version 4)
Quarter: 2023Q2

REPORT INFORMATION
  Report Type: Spontaneous
  Country: AU (occurrence: AU)
  Receive Date: 20190115
  Receipt Date: 20230427
  Transmission Date: 20230721
  Serious: Yes (Hospitalization, Other)
  Sender: FDA-Public Use
  Company Number: AU-ALLERGAN-1901797US

PATIENT
  Sex: Female

DRUGS (8)
  1. ESCITALOPRAM OXALATE [Suspect]
     Active Substance: ESCITALOPRAM OXALATE
     Indication: Crohn^s disease
     Dosage: UNK
  2. CEFTRIAXONE [Suspect]
     Active Substance: CEFTRIAXONE
     Indication: Cholecystitis acute
     Dosage: UNK
  3. CEFTRIAXONE [Suspect]
     Active Substance: CEFTRIAXONE
     Indication: Bile duct stone
  4. CEPHALEXIN [Suspect]
     Active Substance: CEPHALEXIN
     Indication: Rhinitis
     Dosage: UNK
  5. METRONIDAZOLE [Suspect]
     Active Substance: METRONIDAZOLE
     Indication: Bile duct stone
     Dosage: UNK
  6. METRONIDAZOLE [Suspect]
     Active Substance: METRONIDAZOLE
     Indication: Cholecystitis acute
  7. MESALAMINE [Concomitant]
     Active Substance: MESALAMINE
     Indication: Crohn^s disease
  8. OSELTAMIVIR [Concomitant]
     Active Substance: OSELTAMIVIR
     Indication: Product used for unknown indication

REACTIONS (11)
  - Hypersensitivity [Recovering/Resolving]
  - Idiosyncratic drug reaction [Recovering/Resolving]
  - Drug-induced liver injury [Recovered/Resolved]
  - Hepatocellular injury [Recovered/Resolved]
  - Hepatic steatosis [Recovered/Resolved]
  - Hepatic function abnormal [Recovered/Resolved]
  - Abdominal pain [Recovered/Resolved]
  - Pyrexia [Recovered/Resolved]
  - Product use in unapproved indication [Unknown]
  - Rash [Unknown]
  - Swelling face [Unknown]
